FAERS Safety Report 21811604 (Version 2)
Quarter: 2023Q1

REPORT INFORMATION
  Report Type: Spontaneous
  Country: US (occurrence: US)
  Receive Date: 20230103
  Receipt Date: 20230124
  Transmission Date: 20230418
  Serious: Yes (Other)
  Sender: FDA-Public Use
  Company Number: US-ADVANTICEHEALTH-2022-US-030134

PATIENT
  Age: 42 Year
  Sex: Male
  Weight: 121.11 kg

DRUGS (1)
  1. NEW SKIN BANDAGE [Suspect]
     Active Substance: BENZETHONIUM CHLORIDE
     Indication: Infection prophylaxis
     Dosage: APPLY TO WOUNDS ON LEFT ARM AND LEFT HAND SEVERAL TIMES A DAY.
     Route: 061
     Dates: start: 202106, end: 202106

REACTIONS (8)
  - Application site irritation [Recovering/Resolving]
  - Foreign body in skin or subcutaneous tissue [Recovering/Resolving]
  - Intentional product misuse [Recovered/Resolved]
  - Incorrect dosage administered [Recovered/Resolved]
  - Incorrect product administration duration [Recovered/Resolved]
  - Inappropriate schedule of product administration [Recovered/Resolved]
  - Application site erythema [Recovering/Resolving]
  - Application site pain [Recovering/Resolving]

NARRATIVE: CASE EVENT DATE: 20210601
